FAERS Safety Report 4662037-7 (Version None)
Quarter: 2005Q2

REPORT INFORMATION
  Report Type: 
  Country: None (occurrence: None)
  Receive Date: 20050512
  Receipt Date: 20050509
  Transmission Date: 20051028
  Serious: Yes (Other)
  Sender: FDA-Public Use
  Company Number: 2005-05-0471

PATIENT
  Age: 61 Year
  Sex: Male

DRUGS (5)
  1. CLARITIN [Suspect]
     Indication: PRURITUS
     Dosage: 1 TAB QD ORAL
     Route: 048
     Dates: start: 20000502, end: 20050505
  2. CLARITIN [Suspect]
     Indication: RHINORRHOEA
     Dosage: 1 TAB QD ORAL
     Route: 048
     Dates: start: 20000502, end: 20050505
  3. CLARITIN [Suspect]
     Indication: SNEEZING
     Dosage: 1 TAB QD ORAL
     Route: 048
     Dates: start: 20000502, end: 20050505
  4. DILANTIN [Concomitant]
  5. NEURONTIN [Concomitant]

REACTIONS (2)
  - CONDITION AGGRAVATED [None]
  - CONVULSION [None]
